FAERS Safety Report 16771463 (Version 4)
Quarter: 2020Q3

REPORT INFORMATION
  Report Type: Spontaneous
  Country: US (occurrence: US)
  Receive Date: 20190904
  Receipt Date: 20200818
  Transmission Date: 20201102
  Serious: Yes (Hospitalization, Other)
  Sender: FDA-Public Use
  Company Number: US-PFIZER INC-2019379446

PATIENT
  Age: 82 Year
  Sex: Female
  Weight: 77.1 kg

DRUGS (4)
  1. XELJANZ XR [Suspect]
     Active Substance: TOFACITINIB CITRATE
     Dosage: 11 MG, 1X/DAY
     Dates: start: 20180511
  2. PREDNISONE. [Concomitant]
     Active Substance: PREDNISONE
     Dosage: UNK
     Dates: start: 2001
  3. XELJANZ XR [Suspect]
     Active Substance: TOFACITINIB CITRATE
     Indication: RHEUMATOID ARTHRITIS
     Dosage: 11 MG, 1X/DAY
     Dates: start: 20180510
  4. XELJANZ XR [Suspect]
     Active Substance: TOFACITINIB CITRATE
     Dosage: 11 MG, DAILY
     Dates: start: 201808

REACTIONS (6)
  - Pleural effusion [Unknown]
  - Cardiac failure [Unknown]
  - Alopecia [Unknown]
  - Myocardial infarction [Not Recovered/Not Resolved]
  - Dyspnoea [Unknown]
  - Cardiac disorder [Unknown]

NARRATIVE: CASE EVENT DATE: 201808
